FAERS Safety Report 5772705-1 (Version None)
Quarter: 2008Q2

REPORT INFORMATION
  Report Type: 
  Country: None (occurrence: None)
  Receive Date: 20080601
  Receipt Date: 20080229
  Transmission Date: 20081010
  Serious: No
  Sender: FDA-Public Use
  Company Number: US200803000854

PATIENT
  Sex: Male

DRUGS (4)
  1. BYETTA [Suspect]
  2. CYMBALTA [Concomitant]
  3. METFORMIN HCL [Concomitant]
  4. HUMALOG MIX /SPA/ (INSULIN LISPRO, INSULIN LISPRO PROTAMINE SUSPENSION [Concomitant]

REACTIONS (9)
  - BACK DISORDER [None]
  - HYPERKERATOSIS [None]
  - INFLAMMATION [None]
  - INFLUENZA [None]
  - JOINT INJURY [None]
  - MUSCULOSKELETAL DISCOMFORT [None]
  - NEUROPATHY PERIPHERAL [None]
  - OEDEMA PERIPHERAL [None]
  - VOMITING [None]
